FAERS Safety Report 19962829 (Version 1)
Quarter: 2021Q4

REPORT INFORMATION
  Report Type: Spontaneous
  Country: US (occurrence: US)
  Receive Date: 20211017
  Receipt Date: 20211017
  Transmission Date: 20220303
  Serious: Yes (Other)
  Sender: FDA-Public Use
  Company Number: None

PATIENT
  Age: 77 Year
  Sex: Male
  Weight: 102.5 kg

DRUGS (6)
  1. REMDESIVIR [Suspect]
     Active Substance: REMDESIVIR
     Indication: COVID-19 pneumonia
     Dosage: ?          OTHER FREQUENCY:ONCE;
     Route: 042
     Dates: start: 20211016, end: 20211017
  2. Metoprolol tartrate 75 mg PO BID (home med) [Concomitant]
     Dates: start: 20211016, end: 20211017
  3. baricitinib 2 mg PO daily [Concomitant]
     Dates: start: 20211016
  4. amlodipine 10 mg PO daily [Concomitant]
     Dates: start: 20211016, end: 20211017
  5. bumetanide 1 mg PO daily [Concomitant]
     Dates: start: 20211016
  6. dexamethasone 6 mg PO daily [Concomitant]
     Dates: start: 20211016

REACTIONS (5)
  - Therapy interrupted [None]
  - Malaise [None]
  - Atrial fibrillation [None]
  - Bradycardia [None]
  - Heart rate decreased [None]

NARRATIVE: CASE EVENT DATE: 20211017
